FAERS Safety Report 20727173 (Version 4)
Quarter: 2022Q3

REPORT INFORMATION
  Report Type: Report from Study
  Country: US (occurrence: US)
  Receive Date: 20220419
  Receipt Date: 20220707
  Transmission Date: 20221027
  Serious: Yes (Disabling)
  Sender: FDA-Public Use
  Company Number: US-BRISTOL-MYERS SQUIBB COMPANY-2022-021361

PATIENT
  Age: 34 Year
  Sex: Male
  Weight: 93.00 kg

DRUGS (10)
  1. BEMPEGALDESLEUKIN [Suspect]
     Active Substance: BEMPEGALDESLEUKIN
     Indication: Malignant melanoma stage III
     Route: 042
     Dates: start: 20211109, end: 202202
  2. KETOCONAZOLE [Concomitant]
     Active Substance: KETOCONAZOLE
     Indication: Antifungal prophylaxis
     Dosage: 2 PERCENT, QD
     Route: 061
     Dates: start: 20190901
  3. WHEY [Concomitant]
     Active Substance: WHEY
     Indication: Nutritional supplementation
     Dosage: 1 SCOOP, QD
     Route: 048
     Dates: start: 20060101
  4. FISH OIL [Concomitant]
     Active Substance: FISH OIL
     Indication: Nutritional supplementation
     Dosage: 1250 MILLIGRAM, QD
     Route: 048
     Dates: start: 20060101
  5. VITAMIN D NOS [Concomitant]
     Active Substance: VITAMIN D NOS
     Indication: Vitamin supplementation
     Route: 048
     Dates: start: 20190101
  6. MELATONIN [Concomitant]
     Active Substance: MELATONIN
     Indication: Nutritional supplementation
     Dosage: 3 MILLIGRAM, QHS
     Route: 048
     Dates: start: 20190101
  7. TYLENOL EXTRA STRENGTH [Concomitant]
     Active Substance: ACETAMINOPHEN
     Indication: Influenza like illness
     Dosage: PRN
     Route: 048
     Dates: start: 20211110
  8. IBUPROFEN [Concomitant]
     Active Substance: IBUPROFEN
     Indication: Influenza like illness
     Dosage: PRN
     Route: 048
     Dates: start: 20211112
  9. DIPHENHYDRAMINE [Concomitant]
     Active Substance: DIPHENHYDRAMINE
     Indication: Face oedema
     Dosage: 50 MILLIGRAM, Q.8HR PRN
     Route: 048
     Dates: start: 20211223
  10. COVID-19 VACCINE [Concomitant]
     Indication: Prophylaxis
     Dosage: 1 DF= 1 INJECTION, ONE DOSE
     Route: 030
     Dates: start: 20220304, end: 20220304

REACTIONS (1)
  - Hypoacusis [Not Recovered/Not Resolved]

NARRATIVE: CASE EVENT DATE: 20220408
